FAERS Safety Report 9357041 (Version 1)
Quarter: 2013Q2

REPORT INFORMATION
  Report Type: Spontaneous
  Country: GR (occurrence: GR)
  Receive Date: 20130620
  Receipt Date: 20130620
  Transmission Date: 20140414
  Serious: Yes (Hospitalization, Other)
  Sender: FDA-Public Use
  Company Number: GR-AMGEN-GRCSP2013025830

PATIENT
  Age: 75 Year
  Sex: Female
  Weight: 85 kg

DRUGS (5)
  1. PROLIA [Suspect]
     Indication: OSTEOPOROSIS
     Dosage: 60 MG, Q6MO
     Route: 058
     Dates: start: 20120910, end: 20120910
  2. NEORAL [Concomitant]
     Dosage: 100 MG, 24 HOURS
  3. LOBIVON [Concomitant]
     Dosage: , QD
  4. PREZOLON [Concomitant]
     Dosage: QD
  5. SANDIMMUN [Concomitant]

REACTIONS (6)
  - Oedema [Unknown]
  - Pain [Unknown]
  - Pyrexia [Unknown]
  - Erythema [Recovering/Resolving]
  - Cellulitis [Recovered/Resolved with Sequelae]
  - Erysipelas [Recovered/Resolved]
